FAERS Safety Report 14196889 (Version 3)
Quarter: 2017Q4

REPORT INFORMATION
  Report Type: Report from Study
  Country: AR (occurrence: AR)
  Receive Date: 20171116
  Receipt Date: 20171205
  Transmission Date: 20180321
  Serious: Yes (Other)
  Sender: FDA-Public Use
  Company Number: PHHY2017AR168458

PATIENT
  Sex: Female

DRUGS (1)
  1. DUOTRAV [BAC] [Suspect]
     Active Substance: TIMOLOL\TRAVOPROST
     Indication: GLAUCOMA
     Dosage: 2 DRP, QD (ONE IN THE MORNING, ONE AT NIGHT)
     Route: 065

REACTIONS (10)
  - Memory impairment [Unknown]
  - Hypertension [Unknown]
  - Eye pain [Not Recovered/Not Resolved]
  - Diabetes mellitus [Unknown]
  - Eye allergy [Unknown]
  - Headache [Not Recovered/Not Resolved]
  - Photophobia [Unknown]
  - Glaucoma [Not Recovered/Not Resolved]
  - Discomfort [Not Recovered/Not Resolved]
  - Lacrimation increased [Unknown]
